FAERS Safety Report 14301099 (Version 2)
Quarter: 2017Q4

REPORT INFORMATION
  Report Type: Spontaneous
  Country: US (occurrence: US)
  Receive Date: 20171219
  Receipt Date: 20171226
  Transmission Date: 20180321
  Serious: Yes (Other)
  Sender: FDA-Public Use
  Company Number: US-AUROBINDO-AUR-APL-2017-45297

PATIENT

DRUGS (1)
  1. ETOMIDATE. [Suspect]
     Active Substance: ETOMIDATE
     Indication: SEDATION
     Dosage: 10 MG, UNK
     Route: 065

REACTIONS (1)
  - Oxygen saturation decreased [Unknown]
